FAERS Safety Report 20810842 (Version 1)
Quarter: 2022Q2

REPORT INFORMATION
  Report Type: Spontaneous
  Country: US (occurrence: US)
  Receive Date: 20220510
  Receipt Date: 20220510
  Transmission Date: 20220721
  Serious: No
  Sender: FDA-Public Use
  Company Number: US-PFIZER INC-2020107288

PATIENT
  Age: 75 Year
  Sex: Male

DRUGS (3)
  1. RETACRIT [Suspect]
     Active Substance: EPOETIN ALFA-EPBX
     Indication: Diabetic nephropathy
     Dosage: 40000 IU, EVERY 3 WEEKS
  2. RETACRIT [Suspect]
     Active Substance: EPOETIN ALFA-EPBX
     Dosage: 40000 IU, MONTHLY
  3. RETACRIT [Suspect]
     Active Substance: EPOETIN ALFA-EPBX
     Dosage: 40000 IU (RETACRIT 40,000 UNIT SUB-Q (SUBCUTANEOUS) Q (EVERY) 2 WEEKS)
     Route: 058

REACTIONS (2)
  - Haemoglobin decreased [Unknown]
  - Off label use [Unknown]
